FAERS Safety Report 10413884 (Version 1)
Quarter: 2014Q3

REPORT INFORMATION
  Report Type: Spontaneous
  Country: IT (occurrence: IT)
  Receive Date: 20140827
  Receipt Date: 20140827
  Transmission Date: 20150326
  Serious: Yes (Hospitalization)
  Sender: FDA-Public Use
  Company Number: IT-ACTAVIS-2014-18502

PATIENT
  Age: 61 Year
  Sex: Female

DRUGS (3)
  1. IRINOTECAN ACTAVIS [Suspect]
     Active Substance: IRINOTECAN
     Indication: PANCREATIC CARCINOMA
     Dosage: 316.8 MG, TOTAL
     Route: 042
     Dates: start: 20140609, end: 20140609
  2. OXALIPLATINO ACCORD [Suspect]
     Active Substance: OXALIPLATIN
     Indication: PANCREATIC CARCINOMA
     Dosage: 149.6 MG, TOTAL
     Route: 042
     Dates: start: 20140609, end: 20140609
  3. FLUOROURACILE [Suspect]
     Active Substance: FLUOROURACIL
     Indication: PANCREATIC CARCINOMA
     Dosage: 4928 MG, TOTAL
     Route: 042
     Dates: start: 20140609, end: 20140609

REACTIONS (3)
  - Thrombocytopenia [Unknown]
  - Pancytopenia [Unknown]
  - Drug interaction [Unknown]

NARRATIVE: CASE EVENT DATE: 20140609
